APPROVED DRUG PRODUCT: ACETAMINOPHEN AND CODEINE PHOSPHATE
Active Ingredient: ACETAMINOPHEN; CODEINE PHOSPHATE
Strength: 300MG;30MG
Dosage Form/Route: CAPSULE;ORAL
Application: A088324 | Product #001
Applicant: TEVA PHARMACEUTICALS USA INC
Approved: Dec 29, 1983 | RLD: No | RS: No | Type: DISCN